FAERS Safety Report 4594877-7 (Version None)
Quarter: 2005Q1

REPORT INFORMATION
  Report Type: 
  Country: None (occurrence: None)
  Receive Date: 20050223
  Receipt Date: 20050203
  Transmission Date: 20050727
  Serious: Yes (Death)
  Sender: FDA-Public Use
  Company Number: B0370184A

PATIENT

DRUGS (2)
  1. ALKERAN [Suspect]
  2. GRANULOCYTE COL.STIM.FACT [Concomitant]

REACTIONS (2)
  - PSEUDOMONAS INFECTION [None]
  - PYELONEPHRITIS [None]
